FAERS Safety Report 5059720-0 (Version None)
Quarter: 2006Q3

REPORT INFORMATION
  Report Type: 
  Country: None (occurrence: None)
  Receive Date: 20060718
  Receipt Date: 20060713
  Transmission Date: 20061208
  Serious: Yes (Death, Hospitalization)
  Sender: FDA-Public Use
  Company Number: 200610558BVD

PATIENT
  Age: 50 Year
  Sex: Female

DRUGS (1)
  1. ASPIRIN [Suspect]
     Indication: HEADACHE
     Dosage: BID, ORAL
     Route: 048
     Dates: start: 20050609

REACTIONS (3)
  - BRAIN OEDEMA [None]
  - CEREBRAL HAEMORRHAGE [None]
  - NAUSEA [None]
